FAERS Safety Report 9376911 (Version 2)
Quarter: 2013Q3

REPORT INFORMATION
  Report Type: Spontaneous
  Country: GB (occurrence: GB)
  Receive Date: 20130701
  Receipt Date: 20130708
  Transmission Date: 20140515
  Serious: Yes (Other)
  Sender: FDA-Public Use
  Company Number: PHFR2013GB003688

PATIENT
  Sex: Male

DRUGS (8)
  1. SERETIDE [Concomitant]
     Dosage: UNK UKN, TWICE DAILY
  2. TRIHEXYPHENIDYL [Concomitant]
     Dosage: UNK UKN, TWICE DAILY
  3. RITALIN [Suspect]
     Indication: ATTENTION DEFICIT/HYPERACTIVITY DISORDER
     Dosage: UNK UKN, UNK
  4. HALOPERIDOL [Concomitant]
     Dosage: 2 DF, ADDITIONAL 5 MG IF AND WHEN NEEDED
  5. LORAZEPAM [Concomitant]
     Dosage: 1-2 MG, BID WHEN NEEDED
  6. MIRTAZAPINE [Concomitant]
     Dosage: 15 MG, AT NIGHT
  7. OMEPRAZOLE [Concomitant]
     Dosage: UNK UKN, AT LUNCH
  8. CM PROMETHAZINE [Concomitant]
     Dosage: UNK UKN, AT NIGHT

REACTIONS (2)
  - Depression [Unknown]
  - Personality disorder [Unknown]
